FAERS Safety Report 16463134 (Version 1)
Quarter: 2019Q2

REPORT INFORMATION
  Report Type: Spontaneous
  Country: AU (occurrence: AU)
  Receive Date: 20190621
  Receipt Date: 20190621
  Transmission Date: 20190711
  Serious: Yes (Hospitalization)
  Sender: FDA-Public Use
  Company Number: AU-FRESENIUS KABI-FK201906777

PATIENT
  Age: 10 Day
  Sex: Male
  Weight: 3.5 kg

DRUGS (1)
  1. PARACETAMOL (MANUFACTURER UNKNOWN) [Suspect]
     Active Substance: ACETAMINOPHEN
     Indication: PRODUCT USED FOR UNKNOWN INDICATION
     Route: 065

REACTIONS (3)
  - Product administration error [Recovered/Resolved]
  - Hyperbilirubinaemia [Recovered/Resolved]
  - Accidental overdose [Recovered/Resolved]
